FAERS Safety Report 7630998-X (Version None)
Quarter: 2011Q3

REPORT INFORMATION
  Report Type: 
  Country: None (occurrence: None)
  Receive Date: 20110725
  Receipt Date: 20110715
  Transmission Date: 20111222
  Serious: Yes (Hospitalization)
  Sender: FDA-Public Use
  Company Number: US-BIOGENIDEC-2011BI026581

PATIENT
  Age: 62 Year
  Sex: Female

DRUGS (3)
  1. AVONEX [Suspect]
     Route: 030
     Dates: start: 20030801, end: 20050222
  2. AVONEX [Suspect]
     Route: 030
     Dates: start: 19981201, end: 19990701
  3. AVONEX [Suspect]
     Indication: MULTIPLE SCLEROSIS
     Route: 030
     Dates: start: 20060714

REACTIONS (7)
  - GASTROINTESTINAL STOMA COMPLICATION [None]
  - MULTIPLE SCLEROSIS RELAPSE [None]
  - LARGE INTESTINE PERFORATION [None]
  - DIVERTICULITIS [None]
  - POSTOPERATIVE WOUND COMPLICATION [None]
  - DIARRHOEA [None]
  - DEPRESSION [None]
